FAERS Safety Report 6904997-7 (Version None)
Quarter: 2010Q3

REPORT INFORMATION
  Report Type: 
  Country: None (occurrence: None)
  Receive Date: 20100804
  Receipt Date: 20090819
  Transmission Date: 20110219
  Serious: No
  Sender: FDA-Public Use
  Company Number: US-PFIZER INC-2009232934

PATIENT
  Age: 78 Year
  Sex: Female

DRUGS (2)
  1. LYRICA [Suspect]
     Dosage: UNK
  2. ZEGERID [Suspect]
     Dosage: UNK

REACTIONS (5)
  - DIZZINESS [None]
  - FEELING DRUNK [None]
  - GASTRIC DISORDER [None]
  - MUSCULAR WEAKNESS [None]
  - SOMNOLENCE [None]
